FAERS Safety Report 16971260 (Version 1)
Quarter: 2019Q4

REPORT INFORMATION
  Report Type: Report from Study
  Country: FR (occurrence: FR)
  Receive Date: 20191029
  Receipt Date: 20191029
  Transmission Date: 20200122
  Serious: Yes (Hospitalization, Other)
  Sender: FDA-Public Use
  Company Number: FR-BAUSCH-BL-2019-059000

PATIENT
  Age: 62 Year
  Sex: Female

DRUGS (18)
  1. ENOXAPARIN [Suspect]
     Active Substance: ENOXAPARIN
     Indication: MYASTHENIC SYNDROME
     Dosage: 1000 IU, QID
     Route: 065
     Dates: start: 20111118
  2. VORICONAZOLE. [Concomitant]
     Active Substance: VORICONAZOLE
     Indication: LUNG DISORDER
     Route: 048
     Dates: start: 20111118, end: 20120329
  3. SOLUPRED (PREDNISOLONE) [Suspect]
     Active Substance: PREDNISOLONE
     Indication: BRONCHIAL DISORDER
     Route: 048
     Dates: start: 20120329, end: 201209
  4. FUROSEMIDE. [Concomitant]
     Active Substance: FUROSEMIDE
     Indication: HYPERTENSION
     Dosage: QID
     Route: 048
     Dates: start: 20120531
  5. CELLCEPT [Suspect]
     Active Substance: MYCOPHENOLATE MOFETIL\MYCOPHENOLATE MOFETIL HYDROCHLORIDE
     Indication: MYASTHENIC SYNDROME
     Route: 065
     Dates: start: 20090116, end: 20120914
  6. FIRDAPSE [Suspect]
     Active Substance: AMIFAMPRIDINE
     Indication: MYASTHENIC SYNDROME
     Dosage: 70 MG, QD
     Route: 048
     Dates: start: 20101118, end: 20140328
  7. SOLUPRED (PREDNISOLONE) [Suspect]
     Active Substance: PREDNISOLONE
     Route: 048
     Dates: start: 20110614, end: 20110804
  8. AMLOR [Concomitant]
     Active Substance: AMLODIPINE BESYLATE
     Indication: HYPERTENSION
     Route: 048
     Dates: start: 20120531
  9. VORICONAZOLE. [Concomitant]
     Active Substance: VORICONAZOLE
     Route: 048
     Dates: start: 20111118
  10. SEROPLEX [Concomitant]
     Active Substance: ESCITALOPRAM OXALATE
     Indication: DEPRESSION
     Route: 048
     Dates: start: 20111118
  11. SOLUPRED (PREDNISOLONE) [Suspect]
     Active Substance: PREDNISOLONE
     Route: 048
     Dates: start: 20110805, end: 20120329
  12. SOLUPRED (PREDNISOLONE) [Suspect]
     Active Substance: PREDNISOLONE
     Route: 048
     Dates: start: 200901, end: 20110614
  13. EUPANTOL [Concomitant]
     Active Substance: PANTOPRAZOLE SODIUM
     Indication: LUNG DISORDER
     Route: 048
     Dates: start: 20111222
  14. MOTILIUM [Concomitant]
     Active Substance: DOMPERIDONE
     Indication: DIZZINESS
     Dosage: 30 MG, PRN
     Route: 048
     Dates: start: 2007
  15. NOXAFIL [Concomitant]
     Active Substance: POSACONAZOLE
     Indication: LUNG DISORDER
     Route: 048
     Dates: start: 20120522
  16. ALPRAZOLAM. [Concomitant]
     Active Substance: ALPRAZOLAM
     Indication: DEPRESSION
     Route: 048
     Dates: start: 20111118
  17. MESTINON [Suspect]
     Active Substance: PYRIDOSTIGMINE BROMIDE
     Indication: MYASTHENIC SYNDROME
     Route: 065
     Dates: start: 200712, end: 20140328
  18. HYDROCORTISONE. [Suspect]
     Active Substance: HYDROCORTISONE
     Indication: PRODUCT USED FOR UNKNOWN INDICATION
     Route: 065

REACTIONS (1)
  - Scedosporium infection [Recovered/Resolved with Sequelae]

NARRATIVE: CASE EVENT DATE: 20120802
